FAERS Safety Report 8034633-0 (Version None)
Quarter: 2012Q1

REPORT INFORMATION
  Report Type: 
  Country: None (occurrence: None)
  Receive Date: 20120110
  Receipt Date: 20120104
  Transmission Date: 20120608
  Serious: Yes (Hospitalization)
  Sender: FDA-Public Use
  Company Number: US-MERCK-1111USA01771

PATIENT
  Age: 70 Year
  Sex: Male

DRUGS (4)
  1. COZAAR [Suspect]
     Route: 048
     Dates: start: 20100701, end: 20111107
  2. COZAAR [Suspect]
     Indication: BLOOD PRESSURE
     Route: 048
     Dates: start: 20090101, end: 20101001
  3. ASPIRIN [Concomitant]
     Route: 065
  4. LIPITOR [Concomitant]
     Route: 065

REACTIONS (4)
  - DEHYDRATION [None]
  - HYPOTENSION [None]
  - CONVULSION [None]
  - WRONG TECHNIQUE IN DRUG USAGE PROCESS [None]
